FAERS Safety Report 9495386 (Version 3)
Quarter: 2014Q1

REPORT INFORMATION
  Report Type: Spontaneous
  Country: JP (occurrence: JP)
  Receive Date: 20130903
  Receipt Date: 20140120
  Transmission Date: 20141002
  Serious: Yes (Other)
  Sender: FDA-Public Use
  Company Number: JP-GLAXOSMITHKLINE-B0919644A

PATIENT
  Age: 65 Year
  Sex: Female

DRUGS (6)
  1. VOTRIENT 200MG [Suspect]
     Indication: SOFT TISSUE CANCER
     Dosage: 800MG PER DAY
     Route: 048
     Dates: start: 20130725, end: 20130822
  2. VOTRIENT 200MG [Suspect]
     Indication: SOFT TISSUE CANCER
     Dosage: 400MG PER DAY
     Route: 048
     Dates: start: 20130823, end: 20130829
  3. RIZE [Concomitant]
     Dosage: 15MG THREE TIMES PER DAY
     Route: 048
     Dates: start: 20130603
  4. CEPHADOL [Concomitant]
     Dosage: 75MG THREE TIMES PER DAY
     Route: 048
     Dates: start: 20130603
  5. CEROCRAL [Concomitant]
     Dosage: 60MG THREE TIMES PER DAY
     Route: 048
     Dates: start: 20130603
  6. ACECOL [Concomitant]
     Dosage: 4MG PER DAY
     Route: 048
     Dates: start: 20130603

REACTIONS (5)
  - Haematemesis [Recovered/Resolved]
  - Hepatic function abnormal [Not Recovered/Not Resolved]
  - White blood cell count decreased [Recovered/Resolved]
  - Platelet count decreased [Recovering/Resolving]
  - Occult blood [Unknown]
